FAERS Safety Report 5953709-2 (Version None)
Quarter: 2008Q4

REPORT INFORMATION
  Report Type: 
  Country: None (occurrence: None)
  Receive Date: 20081114
  Receipt Date: 20081007
  Transmission Date: 20090506
  Serious: Yes (Other)
  Sender: FDA-Public Use
  Company Number: JP-NOVOPROD-281293

PATIENT
  Age: 6 Year
  Sex: Female

DRUGS (1)
  1. NORDITROPIN NORDIFLEX [Suspect]
     Indication: DRUG USE FOR UNKNOWN INDICATION

REACTIONS (2)
  - HYPOTHYROIDISM [None]
  - ZINC DEFICIENCY [None]
